FAERS Safety Report 4560344-X (Version None)
Quarter: 2005Q1

REPORT INFORMATION
  Report Type: 
  Country: None (occurrence: None)
  Receive Date: 20050118
  Receipt Date: 20040713
  Transmission Date: 20050727
  Serious: Yes (Other)
  Sender: FDA-Public Use
  Company Number: HQWYE095214JUL04

PATIENT
  Age: 50 Year
  Sex: Female

DRUGS (3)
  1. PREMPRO [Suspect]
     Dates: start: 20000111, end: 20020901
  2. PREMARIN [Suspect]
     Dates: start: 19981210, end: 19990105
  3. PROVERA [Suspect]
     Dates: start: 19970730, end: 20000111

REACTIONS (1)
  - OVARIAN CANCER [None]
